FAERS Safety Report 7420187-6 (Version None)
Quarter: 2011Q2

REPORT INFORMATION
  Report Type: 
  Country: None (occurrence: None)
  Receive Date: 20110418
  Receipt Date: 20110330
  Transmission Date: 20111010
  Serious: Yes (Congenital Anomaly, Other)
  Sender: FDA-Public Use
  Company Number: FR-PFIZER INC-2010011787

PATIENT
  Sex: Female

DRUGS (14)
  1. TERCIAN [Suspect]
     Dosage: UNK
     Route: 064
  2. NOVORAPID [Concomitant]
  3. DEROXAT [Suspect]
     Dosage: UNK
     Route: 064
  4. ANAFRANIL [Concomitant]
  5. INSULIN GLULISINE [Concomitant]
  6. OLMESARTAN MEDOXOMIL [Suspect]
     Dosage: UNK
     Route: 064
     Dates: end: 20090401
  7. DEXERYL ^PIERRE FABRE^ [Concomitant]
  8. DAFALGAN [Concomitant]
  9. SEROPRAM [Suspect]
     Dosage: UNK
     Route: 064
     Dates: start: 20090401, end: 20090101
  10. LYRICA [Suspect]
     Dosage: UNK
     Route: 064
     Dates: end: 20090401
  11. DICYNONE [Suspect]
     Dosage: UNK
     Route: 064
     Dates: end: 20090401
  12. LYSANXIA [Suspect]
     Dosage: UNK
     Route: 064
     Dates: end: 20090401
  13. DOXIUM [Suspect]
     Dosage: UNK
     Route: 064
     Dates: end: 20090401
  14. OROCAL [Concomitant]

REACTIONS (7)
  - ATRIAL SEPTAL DEFECT [None]
  - POLYHYDRAMNIOS [None]
  - CONGENITAL MUSCULOSKELETAL ANOMALY [None]
  - CAESAREAN SECTION [None]
  - PREMATURE BABY [None]
  - DRUG EXPOSURE DURING PREGNANCY [None]
  - BREECH PRESENTATION [None]
